FAERS Safety Report 7537749-8 (Version None)
Quarter: 2011Q2

REPORT INFORMATION
  Report Type: 
  Country: None (occurrence: None)
  Receive Date: 20110609
  Receipt Date: 20110606
  Transmission Date: 20111010
  Serious: Yes (Other)
  Sender: FDA-Public Use
  Company Number: CN-PFIZER INC-2011122930

PATIENT
  Age: 70 Year
  Sex: Female

DRUGS (1)
  1. LYRICA [Suspect]
     Indication: POST HERPETIC NEURALGIA
     Dosage: 1 CAPSULE TWICE DAILY
     Route: 048

REACTIONS (5)
  - CARDIAC DISCOMFORT [None]
  - DYSPNOEA [None]
  - CHEST DISCOMFORT [None]
  - CHEST PAIN [None]
  - DRY MOUTH [None]
